FAERS Safety Report 5981762-9 (Version None)
Quarter: 2008Q4

REPORT INFORMATION
  Report Type: 
  Country: None (occurrence: None)
  Receive Date: 20081205
  Receipt Date: 20081126
  Transmission Date: 20090506
  Serious: Yes (Hospitalization)
  Sender: FDA-Public Use
  Company Number: PH-B.I. PHARMACEUTICALS,INC./RIDGEFIELD-2007-BP-26771BP

PATIENT
  Sex: Male
  Weight: 69 kg

DRUGS (2)
  1. PRAMIPEXOLE DIHYDROCHLORIDE [Suspect]
     Indication: PARKINSON'S DISEASE
     Route: 048
     Dates: start: 20071204, end: 20071222
  2. MICARDIS [Suspect]
     Indication: HYPERTENSION
     Dosage: 40MG
     Route: 048
     Dates: start: 20070514

REACTIONS (6)
  - HYPERHIDROSIS [None]
  - MASKED FACIES [None]
  - NAUSEA [None]
  - PERIPHERAL COLDNESS [None]
  - PRESYNCOPE [None]
  - SYNCOPE [None]
